FAERS Safety Report 6519821-4 (Version None)
Quarter: 2009Q4

REPORT INFORMATION
  Report Type: 
  Country: None (occurrence: None)
  Receive Date: 20091228
  Receipt Date: 20091228
  Transmission Date: 20100525
  Serious: Yes (Other)
  Sender: FDA-Public Use
  Company Number: None

PATIENT
  Age: 36 Year
  Sex: Female
  Weight: 63.5036 kg

DRUGS (6)
  1. WELLBUTRIN XL [Suspect]
     Indication: MAJOR DEPRESSION
     Dosage: 300 MG PER DAY PO
     Route: 048
     Dates: start: 20080125, end: 20091225
  2. EFFEXOR XR [Concomitant]
  3. LEVOXYL [Concomitant]
  4. NORDIC NATURALS ULTIMATE OMEGA 2 [Concomitant]
  5. SOLARAY MEGA B-STRESS [Concomitant]
  6. RAINBOW LIGHT PRENATAL ONE MULTIVITAMIN [Concomitant]

REACTIONS (7)
  - CONSTIPATION [None]
  - DRUG EFFECT DECREASED [None]
  - DRUG INEFFECTIVE [None]
  - FEAR [None]
  - PRODUCT SUBSTITUTION ISSUE [None]
  - TREMOR [None]
  - UNEVALUABLE EVENT [None]
